FAERS Safety Report 25376916 (Version 1)
Quarter: 2025Q2

REPORT INFORMATION
  Report Type: Spontaneous
  Country: US (occurrence: US)
  Receive Date: 20250530
  Receipt Date: 20250530
  Transmission Date: 20250717
  Serious: No
  Sender: CIPLA
  Company Number: US-CIPLA LTD.-2024US07992

PATIENT

DRUGS (4)
  1. ALBUTEROL [Suspect]
     Active Substance: ALBUTEROL
     Indication: Dyspnoea
     Dosage: 90 MICROGRAM, BID (1 PUFF TWICE A DAY
     Route: 065
     Dates: start: 20240719
  2. ALBUTEROL [Suspect]
     Active Substance: ALBUTEROL
     Indication: Bronchial secretion retention
     Dosage: 180 MICROGRAM, QID (2 PUFFS EVERY 4 TIMES A DAY FOR 3 DAYS OR ONLY IN EMERGENCY)
     Route: 065
     Dates: start: 20240719
  3. BREZTRI [Concomitant]
     Active Substance: BUDESONIDE\FORMOTEROL\GLYCOPYRROLATE
     Indication: Dyspnoea
     Route: 065
  4. BREZTRI [Concomitant]
     Active Substance: BUDESONIDE\FORMOTEROL\GLYCOPYRROLATE
     Indication: Bronchial secretion retention

REACTIONS (4)
  - Off label use [Unknown]
  - Device delivery system issue [Unknown]
  - Device mechanical issue [Unknown]
  - Product substitution issue [Unknown]

NARRATIVE: CASE EVENT DATE: 20240701
